FAERS Safety Report 25944916 (Version 1)
Quarter: 2025Q4

REPORT INFORMATION
  Report Type: Spontaneous
  Country: US (occurrence: US)
  Receive Date: 20251021
  Receipt Date: 20251021
  Transmission Date: 20260118
  Serious: No
  Sender: Phathom Pharmaceuticals
  Company Number: US-PHATHOM PHARMACEUTICALS INC.-2025PHT01991

PATIENT
  Age: 63 Year
  Sex: Male

DRUGS (6)
  1. VOQUEZNA [Suspect]
     Active Substance: VONOPRAZAN FUMARATE
     Dosage: 10 MG, 1X/DAY
     Route: 048
     Dates: start: 20250715, end: 20250719
  2. IRON [Concomitant]
     Active Substance: IRON
  3. TAMSULOSIN [Concomitant]
     Active Substance: TAMSULOSIN
  4. ROSUVASTATIN [Concomitant]
     Active Substance: ROSUVASTATIN
  5. AMLODIPINE BESYLATE [Concomitant]
     Active Substance: AMLODIPINE BESYLATE
  6. CARVEDILOL [Concomitant]
     Active Substance: CARVEDILOL

REACTIONS (3)
  - Palpitations [Recovered/Resolved]
  - Pyrexia [Recovered/Resolved]
  - Abdominal pain upper [Recovered/Resolved]

NARRATIVE: CASE EVENT DATE: 20250719
